FAERS Safety Report 15439582 (Version 3)
Quarter: 2018Q4

REPORT INFORMATION
  Report Type: Spontaneous
  Country: US (occurrence: US)
  Receive Date: 20180928
  Receipt Date: 20181008
  Transmission Date: 20190204
  Serious: Yes (Other)
  Sender: FDA-Public Use
  Company Number: US-PFIZER INC-2018388368

PATIENT
  Sex: Female

DRUGS (1)
  1. LYRICA [Suspect]
     Active Substance: PREGABALIN
     Dosage: 175 MG, DAILY

REACTIONS (16)
  - Euphoric mood [Unknown]
  - Confusional state [Not Recovered/Not Resolved]
  - Arthralgia [Unknown]
  - Weight decreased [Unknown]
  - Ammonia increased [Unknown]
  - Abdominal pain [Unknown]
  - Mood swings [Unknown]
  - Anxiety [Unknown]
  - Impaired driving ability [Unknown]
  - Burning sensation [Unknown]
  - Bedridden [Unknown]
  - Influenza like illness [Unknown]
  - Chest pain [Unknown]
  - Insomnia [Unknown]
  - Product dose omission [Unknown]
  - Dyspnoea [Unknown]
